FAERS Safety Report 9891953 (Version 2)
Quarter: 2014Q2

REPORT INFORMATION
  Report Type: Spontaneous
  Country: GB (occurrence: GB)
  Receive Date: 20140212
  Receipt Date: 20140430
  Transmission Date: 20141212
  Serious: Yes (Other)
  Sender: FDA-Public Use
  Company Number: GB-JNJFOC-20140203079

PATIENT
  Age: 86 Year
  Sex: Male

DRUGS (6)
  1. ZYTIGA [Suspect]
     Indication: BENIGN PROSTATIC HYPERPLASIA
     Dosage: STARTED FROM HOSPITAL
     Route: 048
     Dates: start: 201306
  2. CITALOPRAM [Concomitant]
     Indication: ANXIETY
     Route: 065
  3. OMEPRAZOLE [Concomitant]
     Indication: GASTROOESOPHAGEAL REFLUX DISEASE
     Route: 065
  4. BICALUTAMIDE [Concomitant]
     Indication: BENIGN PROSTATIC HYPERPLASIA
     Route: 065
  5. ADCAL-D3 [Concomitant]
     Indication: VITAMIN D DEFICIENCY
     Dosage: 750/200
     Route: 065
  6. KEPPRA [Concomitant]
     Indication: CONVULSION
     Route: 065

REACTIONS (3)
  - Pallor [Recovered/Resolved]
  - Confusional state [Recovered/Resolved]
  - Dysarthria [Recovered/Resolved]
